FAERS Safety Report 15704918 (Version 3)
Quarter: 2019Q1

REPORT INFORMATION
  Report Type: Spontaneous
  Country: US (occurrence: US)
  Receive Date: 20181210
  Receipt Date: 20190118
  Transmission Date: 20190417
  Serious: No
  Sender: FDA-Public Use
  Company Number: US-SA-2018SA332596

PATIENT
  Age: 76 Year
  Sex: Female
  Weight: 83.9 kg

DRUGS (1)
  1. PRALUENT [Suspect]
     Active Substance: ALIROCUMAB
     Indication: TYPE IIA HYPERLIPIDAEMIA
     Dosage: UNK UNK, QOW
     Route: 058

REACTIONS (9)
  - Injection site rash [Recovered/Resolved]
  - Underdose [Recovered/Resolved]
  - Injection site warmth [Unknown]
  - Device issue [Recovered/Resolved]
  - Diarrhoea [Unknown]
  - Injection site erythema [Unknown]
  - Injection site bruising [Recovered/Resolved]
  - Abdominal discomfort [Unknown]
  - Injection site pruritus [Unknown]

NARRATIVE: CASE EVENT DATE: 2018
